FAERS Safety Report 7536520-0 (Version None)
Quarter: 2011Q2

REPORT INFORMATION
  Report Type: 
  Country: None (occurrence: None)
  Receive Date: 20110609
  Receipt Date: 20110525
  Transmission Date: 20111010
  Serious: Yes (Death)
  Sender: FDA-Public Use
  Company Number: FR-CELGENEUS-056-21880-11053320

PATIENT
  Age: 58 Year
  Sex: Male

DRUGS (5)
  1. CYCLOPHOSPHAMIDE [Suspect]
     Indication: PLASMACYTOMA
     Route: 065
     Dates: start: 20030101, end: 20030101
  2. MELPHALAN HYDROCHLORIDE [Suspect]
     Indication: PLASMACYTOMA
     Route: 065
     Dates: start: 20041001, end: 20060501
  3. REVLIMID [Suspect]
     Dosage: 25 MILLIGRAM
     Dates: end: 20101201
  4. VELCADE [Suspect]
     Indication: PLASMACYTOMA
     Dosage: 3.5 MILLIGRAM
     Route: 050
     Dates: start: 20050301, end: 20050501
  5. REVLIMID [Suspect]
     Indication: PLASMACYTOMA
     Dosage: 10 MILLIGRAM
     Route: 048
     Dates: start: 20061101

REACTIONS (1)
  - REFRACTORY ANAEMIA WITH AN EXCESS OF BLASTS [None]
